FAERS Safety Report 8234194-7 (Version None)
Quarter: 2012Q1

REPORT INFORMATION
  Report Type: 
  Country: None (occurrence: None)
  Receive Date: 20120326
  Receipt Date: 20120319
  Transmission Date: 20120608
  Serious: Yes (Other)
  Sender: FDA-Public Use
  Company Number: US-AMGEN-USASP2012017538

PATIENT
  Sex: Male

DRUGS (2)
  1. ARANESP [Suspect]
     Indication: ANAEMIA OF MALIGNANT DISEASE
     Dosage: UNK
     Dates: start: 20120307
  2. VITAMIN B12 NOS [Concomitant]

REACTIONS (5)
  - DYSPNOEA [None]
  - RASH PRURITIC [None]
  - SWELLING [None]
  - COUGH [None]
  - HYPERSENSITIVITY [None]
